FAERS Safety Report 6878048-7 (Version None)
Quarter: 2010Q3

REPORT INFORMATION
  Report Type: 
  Country: None (occurrence: None)
  Receive Date: 20100727
  Receipt Date: 20100719
  Transmission Date: 20110219
  Serious: Yes (Other)
  Sender: FDA-Public Use
  Company Number: CA-ASTRAZENECA-2010SE34263

PATIENT
  Age: 40 Year
  Sex: Female
  Weight: 71.2 kg

DRUGS (2)
  1. NEXIUM [Suspect]
     Route: 048
  2. MINOCYCLINE [Concomitant]

REACTIONS (2)
  - BACK PAIN [None]
  - EYE HAEMORRHAGE [None]
